FAERS Safety Report 15902723 (Version 1)
Quarter: 2019Q1

REPORT INFORMATION
  Report Type: Spontaneous
  Country: US (occurrence: US)
  Receive Date: 20190202
  Receipt Date: 20190202
  Transmission Date: 20190417
  Serious: No
  Sender: FDA-Public Use
  Company Number: US-SHIRE-US201903621

PATIENT

DRUGS (1)
  1. XIIDRA [Suspect]
     Active Substance: LIFITEGRAST
     Indication: OCULAR HYPERAEMIA
     Route: 047

REACTIONS (3)
  - Product complaint [Unknown]
  - Instillation site erythema [Unknown]
  - Instillation site pain [Unknown]
